FAERS Safety Report 4706030-4 (Version None)
Quarter: 2005Q2

REPORT INFORMATION
  Report Type: 
  Country: None (occurrence: None)
  Receive Date: 20050627
  Receipt Date: 20050418
  Transmission Date: 20051028
  Serious: Yes (Death, Hospitalization)
  Sender: FDA-Public Use
  Company Number: US-JNJFOC-20040403117

PATIENT
  Age: 56 Year
  Sex: Female

DRUGS (2)
  1. DURAGESIC-100 [Suspect]
     Indication: PAIN
     Dates: start: 20040320
  2. PERCOCET [Concomitant]

REACTIONS (2)
  - COMA [None]
  - OVERDOSE [None]
